FAERS Safety Report 4906518-7 (Version None)
Quarter: 2006Q1

REPORT INFORMATION
  Report Type: 
  Country: None (occurrence: None)
  Receive Date: 20060209
  Receipt Date: 20060127
  Transmission Date: 20060701
  Serious: Yes (Other)
  Sender: FDA-Public Use
  Company Number: PHBS2006ES01469

PATIENT
  Age: 47 Year
  Sex: Female

DRUGS (1)
  1. GLEEVEC [Suspect]
     Indication: CHRONIC MYELOID LEUKAEMIA
     Dosage: 450 MG/D
     Route: 048
     Dates: start: 20051204, end: 20051207

REACTIONS (2)
  - PRURITUS [None]
  - SYSTEMIC LUPUS ERYTHEMATOSUS RASH [None]
